FAERS Safety Report 18794978 (Version 1)
Quarter: 2021Q1

REPORT INFORMATION
  Report Type: Spontaneous
  Country: IN (occurrence: IN)
  Receive Date: 20210127
  Receipt Date: 20210127
  Transmission Date: 20210419
  Serious: Yes (Other)
  Sender: FDA-Public Use
  Company Number: IN-PFIZER INC-2020253148

PATIENT
  Age: 66 Year
  Sex: Male
  Weight: 66 kg

DRUGS (4)
  1. INLYTA [Suspect]
     Active Substance: AXITINIB
     Dosage: 6 MG, 2X/DAY
  2. INLYTA [Suspect]
     Active Substance: AXITINIB
     Indication: METASTATIC RENAL CELL CARCINOMA
     Dosage: 5 MG, 2X/DAY
     Route: 048
     Dates: start: 20191219
  3. INLYTA [Suspect]
     Active Substance: AXITINIB
     Dosage: 7 + 5MG
     Dates: end: 202008
  4. OPDYTA [Suspect]
     Active Substance: NIVOLUMAB
     Dosage: 200 MG
     Dates: start: 20200118

REACTIONS (7)
  - Fatigue [Recovering/Resolving]
  - Productive cough [Recovering/Resolving]
  - Mouth ulceration [Recovering/Resolving]
  - Muscular weakness [Unknown]
  - Seizure [Unknown]
  - Neoplasm progression [Unknown]
  - Visual impairment [Unknown]

NARRATIVE: CASE EVENT DATE: 202008
